FAERS Safety Report 5568358-8 (Version None)
Quarter: 2007Q4

REPORT INFORMATION
  Report Type: 
  Country: None (occurrence: None)
  Receive Date: 20071220
  Receipt Date: 20071213
  Transmission Date: 20080405
  Serious: Yes (Other)
  Sender: FDA-Public Use
  Company Number: PHNU2007DE04221

PATIENT
  Sex: Male

DRUGS (12)
  1. DICLOFENAC [Concomitant]
  2. FOLIC ACID [Concomitant]
     Dosage: 5 MG, QW
  3. HUMIRA [Concomitant]
     Dosage: 1 DF, BIW
  4. METEX [Concomitant]
     Dosage: 15 MG, QW
  5. METOPROLOL SUCCINATE [Concomitant]
     Dosage: 0.5 MG, BID
  6. NITRENDIPINE [Concomitant]
     Dosage: '2.5'
  7. OMEPRAZOLE [Concomitant]
     Dosage: 1 DF, UNK
  8. PREDNISOLONE [Concomitant]
     Dosage: 0.5 DF, UNK
  9. SIMVASTATIN [Concomitant]
     Dosage: 1 DF, QD
  10. ARAVA [Concomitant]
  11. RASILEZ [Concomitant]
     Dosage: 1 DF, QD
  12. DIOVAN [Suspect]

REACTIONS (5)
  - ABDOMINAL DISCOMFORT [None]
  - BLOOD PRESSURE INCREASED [None]
  - DIZZINESS [None]
  - FLATULENCE [None]
  - PNEUMONIA [None]
